FAERS Safety Report 8604994-X (Version None)
Quarter: 2012Q3

REPORT INFORMATION
  Report Type: 
  Country: None (occurrence: None)
  Receive Date: 20120820
  Receipt Date: 20120809
  Transmission Date: 20120928
  Serious: No
  Sender: FDA-Public Use
  Company Number: US-BAYER-2012-082182

PATIENT
  Age: 70 Year
  Sex: Female

DRUGS (1)
  1. ALEVE (CAPLET) [Suspect]
     Indication: BACK PAIN
     Dosage: 2 DF, QD
     Route: 048
     Dates: start: 20120101, end: 20120809

REACTIONS (3)
  - RASH PAPULAR [None]
  - ERYTHEMA [None]
  - RASH [None]
